FAERS Safety Report 8693939 (Version 8)
Quarter: 2012Q4

REPORT INFORMATION
  Report Type: 
  Country: US (occurrence: US)
  Receive Date: 20120731
  Receipt Date: 20121109
  Transmission Date: 20130627
  Serious: Yes (Other)
  Sender: FDA-Public Use
  Company Number: US-PFIZER INC-2012181877

PATIENT
  Age: 55 Year
  Sex: Female
  Weight: 109 kg

DRUGS (13)
  1. SUTENT [Suspect]
     Indication: METASTATIC RENAL CELL CARCINOMA
     Dosage: 50 mg, daily (42 day cycle)
     Dates: start: 20120717
  2. SUTENT [Suspect]
     Indication: RENAL CELL CANCER
  3. DIOVAN [Concomitant]
     Indication: HYPERTENSION
     Dosage: 80 mg, daily
  4. DIOVAN [Concomitant]
     Dosage: 160 mg, daily
  5. DIOVAN [Concomitant]
     Dosage: 160 mg, 2x/day
     Dates: start: 20121012
  6. VITAMIN D3 [Concomitant]
     Dosage: UNK, daily
  7. VITAMIN B12 [Concomitant]
     Dosage: UNK, daily
  8. SIMVASTATIN [Concomitant]
     Dosage: UNK
  9. KEPPRA [Concomitant]
     Dosage: UNK twice daily
  10. ASPIRIN [Concomitant]
     Dosage: UNK
  11. TYLENOL [Concomitant]
     Dosage: UNK, as needed
  12. PROTONIX [Concomitant]
     Dosage: UNK
  13. SYNTHROID [Concomitant]
     Dosage: UNK

REACTIONS (46)
  - Hypertension [Not Recovered/Not Resolved]
  - Headache [Not Recovered/Not Resolved]
  - Headache [Recovered/Resolved]
  - Blood pressure increased [Unknown]
  - Palmar-plantar erythrodysaesthesia syndrome [Recovered/Resolved]
  - Oral herpes [Recovered/Resolved]
  - Blister [Recovered/Resolved]
  - Arthritis [Recovered/Resolved]
  - Paraesthesia [Recovered/Resolved]
  - Diarrhoea [Recovered/Resolved]
  - Abdominal discomfort [Unknown]
  - Fatigue [Recovering/Resolving]
  - Weight decreased [Unknown]
  - Blood thyroid stimulating hormone increased [Unknown]
  - Vitamin D decreased [Unknown]
  - White blood cell count decreased [Unknown]
  - Neutrophil count decreased [Unknown]
  - Dysgeusia [Recovered/Resolved]
  - Glossodynia [Recovered/Resolved]
  - Alopecia [Unknown]
  - Sinus headache [Recovered/Resolved]
  - Dyspepsia [Recovered/Resolved]
  - Rash [Unknown]
  - Rosacea [Unknown]
  - Depression [Recovered/Resolved]
  - Stomatitis [Unknown]
  - Eye swelling [Unknown]
  - Erythema [Unknown]
  - Tenderness [Unknown]
  - Food intolerance [Recovered/Resolved]
  - Gingival bleeding [Recovered/Resolved]
  - Dizziness [Recovered/Resolved]
  - Hair colour changes [Unknown]
  - Skin discolouration [Unknown]
  - Nausea [Unknown]
  - Paraesthesia oral [Not Recovered/Not Resolved]
  - Ageusia [Not Recovered/Not Resolved]
  - Blister [Not Recovered/Not Resolved]
  - Skin exfoliation [Not Recovered/Not Resolved]
  - Flushing [Unknown]
  - Muscle spasms [Recovered/Resolved]
  - Rash [Unknown]
  - Dry skin [Unknown]
  - Feeling abnormal [Unknown]
  - Blood triglycerides increased [Unknown]
  - Blood cholesterol increased [Unknown]
